FAERS Safety Report 5131432-4 (Version None)
Quarter: 2006Q4

REPORT INFORMATION
  Report Type: 
  Country: None (occurrence: None)
  Receive Date: 20061020
  Receipt Date: 20061016
  Transmission Date: 20070319
  Serious: Yes (Other)
  Sender: FDA-Public Use
  Company Number: CH-GLAXOSMITHKLINE-B0442985A

PATIENT
  Age: 81 Year
  Sex: Female
  Weight: 78 kg

DRUGS (6)
  1. AVANDAMET [Suspect]
     Dosage: 1TAB TWICE PER DAY
     Route: 048
     Dates: start: 20060113
  2. AVANDIA [Suspect]
     Dosage: 4MG TWICE PER DAY
  3. BETA BLOCKER [Concomitant]
  4. ACE INHIBITOR [Concomitant]
  5. UNKNOWN NAME [Concomitant]
  6. ASPIRIN [Concomitant]

REACTIONS (2)
  - ANOREXIA [None]
  - DIABETES MELLITUS INADEQUATE CONTROL [None]
